FAERS Safety Report 7327965-2 (Version None)
Quarter: 2011Q1

REPORT INFORMATION
  Report Type: 
  Country: None (occurrence: None)
  Receive Date: 20110303
  Receipt Date: 20110221
  Transmission Date: 20110831
  Serious: Yes (Other)
  Sender: FDA-Public Use
  Company Number: MX-ELI_LILLY_AND_COMPANY-MX201102006563

PATIENT
  Age: 83 Year
  Sex: Male
  Weight: 65 kg

DRUGS (15)
  1. SINTROM [Concomitant]
     Dosage: 2 MG, 2/W
  2. HUMALOG MIX 75/25 [Suspect]
     Indication: DIABETES MELLITUS
     Dosage: 15 IU, DAILY (1/D)
     Route: 058
     Dates: start: 20050101
  3. DILATREND [Concomitant]
     Dosage: 6.25 MG, DAILY (1/D)
  4. EUTIROX [Concomitant]
     Dosage: 0.025 MG, EACH MORNING
  5. ELANTAN [Concomitant]
     Dosage: 20 MG, 2/D
  6. ENALAPRIL MALEATE [Concomitant]
     Dosage: 10 MG, 4/D
  7. TRUSOPT [Concomitant]
     Dosage: 2 GTT, 2/D
  8. FUROSEMIDE [Concomitant]
     Dosage: 20 MG, EACH MORNING
  9. SINTROM [Concomitant]
     Dosage: 3 MG, 5/W
  10. DIGOXIN [Concomitant]
     Dosage: 0.25 MG, 5/W
  11. ANGIOTROFIN [Concomitant]
     Dosage: 30 MG, 2/D
  12. ANGIOTROFIN [Concomitant]
     Dosage: 15 MG, DAILY (1/D)
  13. OMEPRAZOLE [Concomitant]
     Dosage: 20 MG, 2/D
  14. REFRESH TEARS [Concomitant]
     Dosage: UNK, AS NEEDED
  15. ELANTAN [Concomitant]
     Dosage: 10 MG, DAILY (1/D)

REACTIONS (3)
  - BLINDNESS [None]
  - THERAPEUTIC PROCEDURE [None]
  - INJECTION SITE PAIN [None]
